FAERS Safety Report 5247522-1 (Version None)
Quarter: 2007Q1

REPORT INFORMATION
  Report Type: 
  Country: None (occurrence: None)
  Receive Date: 20070227
  Receipt Date: 20070222
  Transmission Date: 20070707
  Serious: Yes (Hospitalization)
  Sender: FDA-Public Use
  Company Number: US-BRISTOL-MYERS SQUIBB COMPANY-13586185

PATIENT
  Age: 25 Year
  Sex: Female

DRUGS (6)
  1. ABILIFY [Suspect]
     Indication: BIPOLAR DISORDER
     Route: 048
     Dates: start: 20051107, end: 20051118
  2. LAMICTAL [Suspect]
     Indication: BIPOLAR DISORDER
     Route: 048
     Dates: start: 20051107, end: 20051118
  3. SPIRONOLACTONE [Concomitant]
  4. DEXAMETHASONE [Concomitant]
  5. ACTOSE [Concomitant]
  6. ZYPREXA [Concomitant]

REACTIONS (1)
  - STEVENS-JOHNSON SYNDROME [None]
